FAERS Safety Report 7050430-7 (Version None)
Quarter: 2010Q4

REPORT INFORMATION
  Report Type: 
  Country: None (occurrence: None)
  Receive Date: 20101018
  Receipt Date: 20101008
  Transmission Date: 20110411
  Serious: Yes (Hospitalization)
  Sender: FDA-Public Use
  Company Number: ES-ELI_LILLY_AND_COMPANY-ES201010001888

PATIENT
  Sex: Female
  Weight: 75 kg

DRUGS (18)
  1. FORTEO [Suspect]
     Indication: OSTEOPOROSIS
     Dosage: 20 UG, DAILY (1/D)
     Route: 058
     Dates: start: 20100211
  2. FORTEO [Suspect]
     Dosage: 20 UG, DAILY (1/D)
     Route: 058
     Dates: start: 20100925
  3. AMLODIPINO                         /00972401/ [Concomitant]
     Dosage: 10 MG, DAILY (1/D)
     Route: 048
  4. RANOPRIL [Concomitant]
     Dosage: UNK, DAILY (1/D)
     Route: 048
  5. GABAPENTIN [Concomitant]
     Indication: PAIN
     Dosage: UNK, 3/D
     Route: 048
  6. FLUOXETINA [Concomitant]
     Dosage: 20 MG, UNKNOWN
     Route: 048
  7. MUCIDAN [Concomitant]
     Dosage: UNK, 2/D
     Route: 048
  8. CYMBALTA [Concomitant]
     Indication: DEPRESSION
     Dosage: UNK, DAILY (1/D)
     Route: 048
  9. FERROGRADUMET [Concomitant]
     Indication: ANAEMIA
     Dosage: UNK, UNKNOWN
     Route: 048
  10. LEDERFOLIN [Concomitant]
     Indication: TEMPORAL ARTERITIS
     Dosage: UNK, WEEKLY (1/W)
     Route: 048
  11. METROTONIN [Concomitant]
     Indication: TEMPORAL ARTERITIS
     Dosage: UNK, WEEKLY (1/W)
     Route: 048
  12. MATRIX [Concomitant]
     Indication: PAIN
     Dosage: 1 PATCH/72 HOURS, UNKNOWN
     Route: 048
  13. PARACETAMOL [Concomitant]
     Indication: PAIN
     Dosage: UNK, AS NEEDED
     Route: 048
  14. FENTANILO [Concomitant]
     Indication: PAIN
     Dosage: UNK, AS NEEDED
     Route: 048
  15. LORAZEPAM [Concomitant]
     Indication: SLEEP DISORDER
     Dosage: UNK, DAILY (1/D)
     Route: 048
  16. NOBRITOL F [Concomitant]
     Dosage: UNK, DAILY (1/D)
     Route: 048
  17. VALIUM [Concomitant]
     Indication: PAIN
     Dosage: 5 MG, DAILY (1/D)
     Route: 048
  18. TRANKIMAZIN [Concomitant]
     Indication: PAIN
     Dosage: 1 MG, DAILY (1/D)
     Route: 048

REACTIONS (2)
  - HEAD DISCOMFORT [None]
  - HOSPITALISATION [None]
